FAERS Safety Report 9954162 (Version 2)
Quarter: 2014Q1

REPORT INFORMATION
  Report Type: Report from Study
  Country: US (occurrence: US)
  Receive Date: 20140304
  Receipt Date: 20140304
  Transmission Date: 20141002
  Serious: No
  Sender: FDA-Public Use
  Company Number: US-ABBVIE-13P-163-1060471-00

PATIENT
  Age: 47 Year
  Sex: Female

DRUGS (12)
  1. HUMIRA [Suspect]
     Indication: COLITIS ULCERATIVE
     Dates: start: 20130214, end: 20130214
  2. HUMIRA [Suspect]
     Dates: start: 20130228, end: 20130228
  3. HUMIRA [Suspect]
     Dates: start: 20130228
  4. SULFASALAZINE [Concomitant]
     Indication: COLITIS ULCERATIVE
  5. FOLIC ACID [Concomitant]
     Indication: PRODUCT USED FOR UNKNOWN INDICATION
  6. CALCIUM [Concomitant]
     Indication: MINERAL SUPPLEMENTATION
  7. VITAMIN [Concomitant]
     Indication: VITAMIN SUPPLEMENTATION
  8. NORVASC [Concomitant]
     Indication: HYPERTENSION
  9. CHLOR KON [Concomitant]
     Indication: MINERAL SUPPLEMENTATION
     Dosage: 20 MEQ 1/DAY
  10. VOLTAREN [Concomitant]
     Indication: ARTHRALGIA
     Route: 061
  11. BENADRYL [Concomitant]
     Indication: PRODUCT USED FOR UNKNOWN INDICATION
     Route: 061
  12. BENADRYL [Concomitant]
     Indication: PRODUCT USED FOR UNKNOWN INDICATION
     Route: 048

REACTIONS (5)
  - Injection site swelling [Recovering/Resolving]
  - Injection site pruritus [Recovering/Resolving]
  - Injection site erythema [Recovering/Resolving]
  - Injection site bruising [Unknown]
  - Injection site swelling [Unknown]
